FAERS Safety Report 5020426-5 (Version None)
Quarter: 2006Q2

REPORT INFORMATION
  Report Type: 
  Country: None (occurrence: None)
  Receive Date: 20060602
  Receipt Date: 20060523
  Transmission Date: 20061013
  Serious: Yes (Hospitalization)
  Sender: FDA-Public Use
  Company Number: 20051434SGDS

PATIENT
  Age: 46 Year
  Sex: Female
  Weight: 44 kg

DRUGS (3)
  1. AVELOX [Suspect]
     Indication: LOBAR PNEUMONIA
     Dosage: 400 MG, QD, ORALL
     Route: 048
     Dates: start: 20051130, end: 20051210
  2. AVELOX [Suspect]
     Indication: PNEUMONIA PNEUMOCOCCAL
     Dosage: 400 MG, QD, ORALL
     Route: 048
     Dates: start: 20051130, end: 20051210
  3. BACTRIM DS [Concomitant]

REACTIONS (1)
  - LUNG ABSCESS [None]
